FAERS Safety Report 13549236 (Version 5)
Quarter: 2020Q3

REPORT INFORMATION
  Report Type: Report from Study
  Country: CZ (occurrence: CZ)
  Receive Date: 20170516
  Receipt Date: 20180305
  Transmission Date: 20201105
  Serious: Yes (Death, Hospitalization)
  Sender: FDA-Public Use
  Company Number: CZ-ROCHE-1933969

PATIENT
  Age: 73 Year
  Sex: Male
  Weight: 75 kg

DRUGS (11)
  1. HERPESIN [Concomitant]
     Route: 065
     Dates: start: 20160823
  2. LEXAURIN [Concomitant]
     Active Substance: BROMAZEPAM
     Indication: DEPRESSION
     Route: 065
     Dates: start: 20160927
  3. PRADAXA [Concomitant]
     Active Substance: DABIGATRAN ETEXILATE MESYLATE
     Indication: ATRIAL FIBRILLATION
     Route: 065
     Dates: start: 20160930
  4. CIPLOX [Concomitant]
     Active Substance: CIPROFLOXACIN
     Indication: INFECTION
     Route: 065
     Dates: start: 20161001
  5. BENDAMUSTINE [Suspect]
     Active Substance: BENDAMUSTINE
     Indication: B-CELL LYMPHOMA
     Dosage: ON 31/AUG/2016, AT 08:30, THE PATIENT RECEIVED THE MOST RECENT DOSE (174 MG) PRIOR TO DIVERTICULITIS
     Route: 042
     Dates: start: 20160629
  6. POLATUZUMAB VEDOTIN. [Suspect]
     Active Substance: POLATUZUMAB VEDOTIN
     Indication: B-CELL LYMPHOMA
     Dosage: ON 26/JUL/2016, AT 13:45, THE PATIENT RECEIVED THE MOST RECENT DOSE OF 142 MG PRIOR TO DIVERTICULITI
     Route: 042
     Dates: start: 20160629
  7. HELICID [Concomitant]
     Active Substance: OMEPRAZOLE
     Indication: ABDOMINAL PAIN UPPER
     Route: 065
     Dates: start: 20160803
  8. RITUXIMAB. [Suspect]
     Active Substance: RITUXIMAB
     Indication: B-CELL LYMPHOMA
     Dosage: ON 30/AUG/2016, AT 13:30, THE PATIENT RECEIVED THE MOST RECENT DOSE (742.5 MG) PRIOR TO DIVERTICULIT
     Route: 042
     Dates: start: 20160628
  9. NEBILET [Concomitant]
     Active Substance: NEBIVOLOL
     Indication: ATRIAL FIBRILLATION
     Route: 065
     Dates: start: 20160930
  10. KALIUMDIHYDROGENPHOSPHAT [Concomitant]
     Indication: HYPOPHOSPHATAEMIA
     Route: 065
     Dates: start: 20160712
  11. CITALOPRAM [Concomitant]
     Active Substance: CITALOPRAM HYDROBROMIDE
     Indication: DEPRESSION
     Route: 065
     Dates: start: 20160930

REACTIONS (2)
  - Diverticulitis [Recovered/Resolved]
  - Death [Fatal]

NARRATIVE: CASE EVENT DATE: 20170415
